FAERS Safety Report 20864158 (Version 2)
Quarter: 2022Q2

REPORT INFORMATION
  Report Type: Spontaneous
  Country: US (occurrence: US)
  Receive Date: 20220523
  Receipt Date: 20220616
  Transmission Date: 20220721
  Serious: Yes (Death, Hospitalization)
  Sender: FDA-Public Use
  Company Number: US-AVEO ONCOLOGY-2022-AVEO-US000173

PATIENT

DRUGS (2)
  1. FOTIVDA [Suspect]
     Active Substance: TIVOZANIB HYDROCHLORIDE
     Indication: Renal cell carcinoma
     Dosage: 1.34 MG, DAILY FOR 21 DAYS ON, 7 DAYS OFF
     Route: 048
     Dates: start: 20220225
  2. AFINITOR [Concomitant]
     Active Substance: EVEROLIMUS

REACTIONS (4)
  - Disease progression [Fatal]
  - Hepatic failure [Unknown]
  - Cardiac failure congestive [Unknown]
  - Dehydration [Unknown]
